FAERS Safety Report 15470406 (Version 3)
Quarter: 2019Q2

REPORT INFORMATION
  Report Type: Spontaneous
  Country: US (occurrence: US)
  Receive Date: 20181005
  Receipt Date: 20190611
  Transmission Date: 20190711
  Serious: Yes (Other)
  Sender: FDA-Public Use
  Company Number: US-PFIZER INC-2018397570

PATIENT
  Age: 63 Year
  Sex: Male
  Weight: 79.38 kg

DRUGS (3)
  1. LYRICA [Suspect]
     Active Substance: PREGABALIN
     Indication: HYPOAESTHESIA
     Dosage: 75 MG, 1X/DAY
     Route: 048
     Dates: start: 201105
  2. LYRICA [Suspect]
     Active Substance: PREGABALIN
     Indication: PAIN IN EXTREMITY
     Dosage: 525 MG, 2X/DAY
  3. LYRICA [Suspect]
     Active Substance: PREGABALIN
     Indication: BACK PAIN
     Dosage: 525 MG, DAILY ((3) 150MG CAPSULES AND (1) 75MG CAPSULE)
     Route: 048
     Dates: start: 201408

REACTIONS (7)
  - Rotator cuff syndrome [Unknown]
  - Anxiety [Recovered/Resolved]
  - Product use issue [Unknown]
  - Muscle rupture [Unknown]
  - Vertigo [Recovered/Resolved]
  - Arthropathy [Unknown]
  - Feeling abnormal [Recovered/Resolved]

NARRATIVE: CASE EVENT DATE: 201105
